FAERS Safety Report 7099064-9 (Version None)
Quarter: 2010Q4

REPORT INFORMATION
  Report Type: 
  Country: None (occurrence: None)
  Receive Date: 20101112
  Receipt Date: 20101108
  Transmission Date: 20110411
  Serious: Yes (Hospitalization, Congenital Anomaly)
  Sender: FDA-Public Use
  Company Number: A0681026A

PATIENT
  Sex: Male
  Weight: 4 kg

DRUGS (6)
  1. PAXIL [Suspect]
     Indication: DEPRESSION
     Dosage: 20MG PER DAY
     Dates: start: 20010501, end: 20020301
  2. PRENATAL VITAMINS [Concomitant]
  3. VICODIN [Concomitant]
     Dates: start: 20010601
  4. PHENERGAN [Concomitant]
     Dates: start: 20010601
  5. AMOXICILLIN [Concomitant]
     Dates: start: 20010701
  6. ZITHROMAX [Concomitant]
     Dates: start: 20010901

REACTIONS (4)
  - DRUG EXPOSURE DURING PREGNANCY [None]
  - DRUG EXPOSURE VIA BREAST MILK [None]
  - HEPATIC HAEMATOMA [None]
  - HEPATIC MASS [None]
